APPROVED DRUG PRODUCT: BORTEZOMIB
Active Ingredient: BORTEZOMIB
Strength: 3.5MG/VIAL
Dosage Form/Route: POWDER;INTRAVENOUS
Application: N205004 | Product #001
Applicant: FRESENIUS KABI USA LLC
Approved: Nov 6, 2017 | RLD: No | RS: No | Type: DISCN

PATENTS:
Patent 8962572 | Expires: Nov 3, 2032